FAERS Safety Report 9559495 (Version 1)
Quarter: 2013Q3

REPORT INFORMATION
  Report Type: Spontaneous
  Country: US (occurrence: None)
  Receive Date: 20130913
  Receipt Date: 20130913
  Transmission Date: 20140515
  Serious: Yes (Other)
  Sender: FDA-Public Use
  Company Number: 1000045382

PATIENT
  Age: 86 Year
  Sex: Female

DRUGS (5)
  1. DALIRESP (ROFLUMILAST) (500 MICROGRAM, TABLETS) [Suspect]
     Indication: CHRONIC OBSTRUCTIVE PULMONARY DISEASE
     Dosage: 500 MCG, 1 IN 1 D
     Route: 048
     Dates: start: 2012
  2. SINGULAR (MONTELUKAST SODIUM) [Concomitant]
  3. SPIRIVA (TIOTROPIUM BROMIDE) [Concomitant]
  4. ADVAIR (SERETIDE) (SERETIDE) [Concomitant]
  5. MULTAQ (DRONEDARONE HYDROCHLORIDE) [Concomitant]

REACTIONS (3)
  - Weight decreased [None]
  - Tremor [None]
  - Dyspnoea [None]
